FAERS Safety Report 4986417-5 (Version None)
Quarter: 2006Q1

REPORT INFORMATION
  Report Type: 
  Country: None (occurrence: None)
  Receive Date: 20060309
  Receipt Date: 20051129
  Transmission Date: 20060701
  Serious: Yes (Other)
  Sender: FDA-Public Use
  Company Number: 93890

PATIENT
  Age: 49 Year
  Sex: Male
  Weight: 90.7 kg

DRUGS (1)
  1. ACCUTANE [Suspect]
     Indication: CELLULITIS
     Dosage: 50 MG 2 PER DAY ORAL
     Route: 048
     Dates: start: 19971029, end: 19971210

REACTIONS (1)
  - BLOOD CREATINE PHOSPHOKINASE INCREASED [None]
